FAERS Safety Report 25402464 (Version 1)
Quarter: 2025Q2

REPORT INFORMATION
  Report Type: Spontaneous
  Country: GB (occurrence: GB)
  Receive Date: 20250605
  Receipt Date: 20250605
  Transmission Date: 20250716
  Serious: Yes (Life-Threatening, Hospitalization, Other)
  Sender: PFIZER
  Company Number: None

PATIENT

DRUGS (6)
  1. TRANEXAMIC ACID [Suspect]
     Active Substance: TRANEXAMIC ACID
  2. TEICOPLANIN [Suspect]
     Active Substance: TEICOPLANIN
     Dates: start: 20250603
  3. GENTAMICIN [Suspect]
     Active Substance: GENTAMICIN
  4. PROPOFOL [Suspect]
     Active Substance: PROPOFOL
  5. FENTANYL [Suspect]
     Active Substance: FENTANYL
  6. LEVOBUPIVACAINE [Suspect]
     Active Substance: LEVOBUPIVACAINE

REACTIONS (3)
  - Hypotension [Recovering/Resolving]
  - Cough [Unknown]
  - Erythema [Unknown]

NARRATIVE: CASE EVENT DATE: 20250603
